FAERS Safety Report 6639297 (Version 4)
Quarter: 2020Q1

REPORT INFORMATION
  Report Type: Spontaneous
  Country: ES (occurrence: ES)
  Receive Date: 20080513
  Receipt Date: 20200303
  Transmission Date: 20200409
  Serious: Yes (Other)
  Sender: FDA-Public Use
  Company Number: ES-PFIZER INC-2008039287

PATIENT
  Age: 14 Month
  Sex: Male
  Weight: 15 kg

DRUGS (3)
  1. HYDROCORTISONE. [Suspect]
     Active Substance: HYDROCORTISONE
     Indication: INFANTILE SPASMS
     Dosage: 95 MG, DAILY (HIGH DOSE, SUSPENSION, ADMINISTERED BEGINNING AT: SEVEN MONTHS OF AGE)
     Route: 048
  2. PREDNISONE. [Suspect]
     Active Substance: PREDNISONE
     Dosage: UNK (DOSAGE WAS PROGRESSIVELY REDUCED AND THEN DISCONTINUED)
  3. PREDNISONE. [Suspect]
     Active Substance: PREDNISONE
     Indication: INFANTILE SPASMS
     Dosage: UNK

REACTIONS (1)
  - Hypertrophic cardiomyopathy [Recovered/Resolved]
